FAERS Safety Report 16311658 (Version 1)
Quarter: 2019Q2

REPORT INFORMATION
  Report Type: Report from Study
  Country: FR (occurrence: FR)
  Receive Date: 20190514
  Receipt Date: 20190514
  Transmission Date: 20190711
  Serious: Yes (Death, Other)
  Sender: FDA-Public Use
  Company Number: FR-JAZZ-2018-FR-016145

PATIENT

DRUGS (1)
  1. DEFITELIO [Suspect]
     Active Substance: DEFIBROTIDE SODIUM
     Indication: PROPHYLAXIS
     Dosage: 25 MG/KG, QD
     Dates: start: 20180713, end: 20180718

REACTIONS (4)
  - Septic shock [Fatal]
  - Infection [Unknown]
  - Cellulitis [Fatal]
  - Graft versus host disease [Unknown]

NARRATIVE: CASE EVENT DATE: 20180712
